FAERS Safety Report 22390504 (Version 2)
Quarter: 2024Q2

REPORT INFORMATION
  Report Type: Report from Study
  Country: US (occurrence: US)
  Receive Date: 20230531
  Receipt Date: 20240411
  Transmission Date: 20240715
  Serious: Yes (Hospitalization, Other)
  Sender: FDA-Public Use
  Company Number: US-MORPHOSYS US-2023-MOR004207-US

PATIENT

DRUGS (1)
  1. MONJUVI [Suspect]
     Active Substance: TAFASITAMAB-CXIX
     Indication: Product used for unknown indication
     Dosage: 2-3 INFUSIONS
     Route: 065

REACTIONS (3)
  - Hypertension [Unknown]
  - Pleural effusion [Unknown]
  - Neoplasm malignant [Unknown]

NARRATIVE: CASE EVENT DATE: 20230523
